FAERS Safety Report 5102955-9 (Version None)
Quarter: 2006Q3

REPORT INFORMATION
  Report Type: 
  Country: None (occurrence: None)
  Receive Date: 20060907
  Receipt Date: 20060823
  Transmission Date: 20061208
  Serious: Yes (Life-Threatening, Hospitalization, Other)
  Sender: FDA-Public Use
  Company Number: JP200608000603

PATIENT
  Age: 50 Year
  Sex: Female
  Weight: 72 kg

DRUGS (9)
  1. OLANZAPINE [Suspect]
     Dosage: 20 MG, DAILY (1/D), ORAL
     Route: 048
     Dates: start: 20050728, end: 20050803
  2. OLANZAPINE [Suspect]
     Dosage: 20 MG, DAILY (1/D), ORAL
     Route: 048
     Dates: start: 20050804, end: 20060613
  3. RISPERDAL /SWE/ (RISPERIDONE) [Concomitant]
  4. AKINETON /AUS/ (BIPERIDEN HYDROCHLORIDE) [Concomitant]
  5. ARTANE [Concomitant]
  6. PAXIL [Concomitant]
  7. ALPRAZOLAM [Concomitant]
  8. ACINON (NIZATIDINE) TABLET [Concomitant]
  9. DEPAS (ETIZOLAM) TABLET [Concomitant]

REACTIONS (10)
  - APALLIC SYNDROME [None]
  - BREAST MASS [None]
  - CARDIO-RESPIRATORY ARREST [None]
  - CHRONIC SINUSITIS [None]
  - HYPOXIA [None]
  - INAPPROPRIATE ANTIDIURETIC HORMONE SECRETION [None]
  - NEUROLEPTIC MALIGNANT SYNDROME [None]
  - POLYDIPSIA [None]
  - PYREXIA [None]
  - WEIGHT INCREASED [None]
